FAERS Safety Report 9022989 (Version 1)
Quarter: 2013Q1

REPORT INFORMATION
  Report Type: Spontaneous
  Country: US (occurrence: US)
  Receive Date: 20130120
  Receipt Date: 20130120
  Transmission Date: 20140127
  Serious: No
  Sender: FDA-Public Use
  Company Number: US-ALLERGAN-1216000US

PATIENT
  Sex: Female

DRUGS (18)
  1. BOTOX? [Suspect]
     Indication: MIGRAINE
     Dosage: 155 UNITS, SINGLE
     Route: 030
     Dates: start: 20120807, end: 20120807
  2. CLONAZEPAM [Concomitant]
     Indication: PRODUCT USED FOR UNKNOWN INDICATION
     Dosage: UNK, QAM
     Route: 048
  3. CLONAZEPAM [Concomitant]
     Dosage: UNK, QHS
     Route: 048
  4. TOPOMAX [Concomitant]
     Indication: MIGRAINE
     Dosage: 200 MG, BID
     Route: 048
  5. OCELLA [Concomitant]
     Indication: CONTRACEPTION
     Dosage: UNK, QD
     Route: 048
  6. FLONASE [Concomitant]
     Indication: HYPERSENSITIVITY
     Dosage: UNK, PRN
     Route: 045
  7. ZYRTEC [Concomitant]
     Indication: HYPERSENSITIVITY
     Dosage: UNK, QD
     Route: 048
  8. ALBUTERAL TABLETS [Concomitant]
     Indication: ASTHMA
     Dosage: UNK
  9. SINGULAIR [Concomitant]
     Indication: ASTHMA
     Dosage: UNK, QD
     Route: 048
  10. RANITIDINE [Concomitant]
     Indication: GASTROOESOPHAGEAL REFLUX DISEASE
     Dosage: UNK, QD
     Route: 048
  11. FEXOFENADINE [Concomitant]
     Indication: HYPERSENSITIVITY
     Dosage: UNK, QD
     Route: 048
  12. OXYCODONE [Concomitant]
     Indication: PAIN
     Dosage: UNK
  13. ZOLPIDEM [Concomitant]
     Indication: INSOMNIA
     Dosage: UNK, QHS
     Route: 048
  14. SUMATRIPTAN [Concomitant]
     Indication: MIGRAINE
     Dosage: UNK, QD
     Route: 048
  15. DILTIAZEM [Concomitant]
     Indication: PRODUCT USED FOR UNKNOWN INDICATION
     Dosage: 180 MG, QD
     Route: 048
  16. DURAGESIC PATCH [Concomitant]
     Indication: PAIN
     Dosage: UNK
     Route: 061
  17. HYOSCYAMINE CR [Concomitant]
     Indication: PRODUCT USED FOR UNKNOWN INDICATION
     Dosage: 0.375 MG, QD
     Route: 048
  18. CYANOCOBALAMIN [Concomitant]
     Indication: PRODUCT USED FOR UNKNOWN INDICATION
     Dosage: UNK UNITS, UNK

REACTIONS (1)
  - Skin discolouration [Recovered/Resolved]
